FAERS Safety Report 4909124-3 (Version None)
Quarter: 2006Q1

REPORT INFORMATION
  Report Type: 
  Country: None (occurrence: None)
  Receive Date: 20060210
  Receipt Date: 20060210
  Transmission Date: 20060701
  Serious: Yes (Hospitalization)
  Sender: FDA-Public Use
  Company Number: None

PATIENT
  Age: 81 Year
  Sex: Female
  Weight: 59.1 kg

DRUGS (4)
  1. RAPAMYCIN 4 MG QD LC LABORATORIES MANUFACTURER [Suspect]
     Indication: NEOPLASM
     Dosage: 4 MG ORALLY QD
     Route: 048
     Dates: start: 20051101
  2. DIOVAN [Concomitant]
  3. NORVASC [Concomitant]
  4. GLYBURIDE [Concomitant]

REACTIONS (3)
  - PYREXIA [None]
  - WHITE BLOOD CELL COUNT INCREASED [None]
  - WHITE BLOOD CELLS URINE POSITIVE [None]
